FAERS Safety Report 4778416-3 (Version None)
Quarter: 2005Q3

REPORT INFORMATION
  Report Type: 
  Country: None (occurrence: None)
  Receive Date: 20050923
  Receipt Date: 20050923
  Transmission Date: 20060218
  Serious: Yes (Death)
  Sender: FDA-Public Use
  Company Number: None

PATIENT
  Sex: Male

DRUGS (2)
  1. CAMPATH [Suspect]
     Indication: T-CELL LYMPHOMA
     Dosage: NEVER RECEIVED BY PATIENT
     Dates: start: 20050902, end: 20050912
  2. CHOP [Concomitant]

REACTIONS (11)
  - BLOOD CREATININE INCREASED [None]
  - BLOOD SODIUM DECREASED [None]
  - BLOOD UREA INCREASED [None]
  - CARDIAC ARREST [None]
  - DIZZINESS [None]
  - DYSPNOEA [None]
  - HAEMOGLOBIN DECREASED [None]
  - RENAL IMPAIRMENT [None]
  - SEPTIC SHOCK [None]
  - URINARY INCONTINENCE [None]
  - WHITE BLOOD CELL COUNT INCREASED [None]
